FAERS Safety Report 13394081 (Version 1)
Quarter: 2017Q2

REPORT INFORMATION
  Report Type: Report from Study
  Country: None (occurrence: US)
  Receive Date: 20170401
  Receipt Date: 20170401
  Transmission Date: 20170830
  Serious: Yes (Other)
  Sender: FDA-Public Use
  Company Number: US-ABBVIE-17K-163-1924846-00

PATIENT
  Age: 52 Year
  Sex: Female

DRUGS (1)
  1. HUMIRA [Suspect]
     Active Substance: ADALIMUMAB
     Indication: PSORIASIS
     Route: 058

REACTIONS (5)
  - Inappropriate schedule of drug administration [Unknown]
  - Chronic kidney disease [Unknown]
  - Drug dispensing error [Unknown]
  - Dysuria [Unknown]
  - Anxiety [Unknown]

NARRATIVE: CASE EVENT DATE: 2017
